FAERS Safety Report 23800647 (Version 6)
Quarter: 2025Q3

REPORT INFORMATION
  Report Type: Report from Study
  Country: CA (occurrence: CA)
  Receive Date: 20240430
  Receipt Date: 20250803
  Transmission Date: 20251020
  Serious: Yes (Other)
  Sender: ALEXION PHARMACEUTICALS
  Company Number: 2024A035434

PATIENT
  Sex: Female

DRUGS (5)
  1. TEZEPELUMAB [Suspect]
     Active Substance: TEZEPELUMAB
     Indication: Asthma
     Dates: start: 20230403, end: 20240115
  2. TEZEPELUMAB [Suspect]
     Active Substance: TEZEPELUMAB
  3. XOLAIR [Concomitant]
     Active Substance: OMALIZUMAB
  4. VENTOLIN [Concomitant]
     Active Substance: ALBUTEROL SULFATE
  5. GLYCOPYRROLATE\INDACATEROL\MOMETASONE FUROATE [Concomitant]
     Active Substance: GLYCOPYRROLATE\INDACATEROL\MOMETASONE FUROATE

REACTIONS (7)
  - Arrhythmia [Unknown]
  - Scratch [Unknown]
  - Myalgia [Unknown]
  - Visual impairment [Unknown]
  - Chest pain [Unknown]
  - Arthralgia [Unknown]
  - Drug ineffective [Unknown]
